FAERS Safety Report 7771555-4 (Version None)
Quarter: 2011Q3

REPORT INFORMATION
  Report Type: 
  Country: None (occurrence: None)
  Receive Date: 20110922
  Receipt Date: 20100311
  Transmission Date: 20111222
  Serious: Yes (Hospitalization)
  Sender: FDA-Public Use
  Company Number: US-ASTRAZENECA-2009UW03735

PATIENT
  Age: 29 Year
  Sex: Female
  Weight: 113.4 kg

DRUGS (9)
  1. SEROQUEL [Suspect]
     Indication: SLEEP DISORDER
     Route: 048
     Dates: start: 20050101
  2. SEROQUEL [Suspect]
     Dosage: 200MG-300MG
     Route: 048
     Dates: start: 20060711
  3. SEROQUEL [Suspect]
     Indication: DEPRESSION
     Route: 048
     Dates: start: 20050101
  4. ABILIFY [Concomitant]
  5. PAXIL CR [Concomitant]
     Dates: start: 20070601
  6. FLUCONAZOLE [Concomitant]
     Dates: start: 20070302
  7. BUSPIRONE HCL [Concomitant]
     Dates: start: 20070718
  8. SEROQUEL [Suspect]
     Dosage: 200MG-300MG
     Route: 048
     Dates: start: 20060711
  9. NYSTATIN/TRIAMCINOLONE [Concomitant]
     Dates: start: 20070302

REACTIONS (1)
  - TYPE 2 DIABETES MELLITUS [None]
